FAERS Safety Report 12193983 (Version 2)
Quarter: 2016Q3

REPORT INFORMATION
  Report Type: Spontaneous
  Country: US (occurrence: US)
  Receive Date: 20160321
  Receipt Date: 20160812
  Transmission Date: 20161109
  Serious: Yes (Hospitalization)
  Sender: FDA-Public Use
  Company Number: US-BEH-2016060111

PATIENT
  Sex: Female
  Weight: 56.7 kg

DRUGS (34)
  1. HIZENTRA [Suspect]
     Active Substance: HUMAN IMMUNOGLOBULIN G
     Indication: ASTHMA
     Route: 058
  2. GREEN SUPERFOOD POWDER [Concomitant]
  3. XOLAIR [Concomitant]
     Active Substance: OMALIZUMAB
  4. ESCITALOPRAM [Concomitant]
     Active Substance: ESCITALOPRAM OXALATE
  5. SPIRIVA [Concomitant]
     Active Substance: TIOTROPIUM BROMIDE MONOHYDRATE
  6. HIZENTRA [Suspect]
     Active Substance: HUMAN IMMUNOGLOBULIN G
     Indication: IMMUNODEFICIENCY COMMON VARIABLE
  7. VALACYCLOVIR [Concomitant]
     Active Substance: VALACYCLOVIR HYDROCHLORIDE
  8. ATORVASTATIN [Concomitant]
     Active Substance: ATORVASTATIN
  9. EPIPEN [Concomitant]
     Active Substance: EPINEPHRINE
  10. LEVSIN-SL [Concomitant]
  11. MONTELUKAST SODIUM. [Concomitant]
     Active Substance: MONTELUKAST SODIUM
  12. PREDNISONE. [Concomitant]
     Active Substance: PREDNISONE
  13. L-M-X [Concomitant]
  14. DIPHENHYDRAMINE. [Concomitant]
     Active Substance: DIPHENHYDRAMINE
  15. SYMBICORT [Concomitant]
     Active Substance: BUDESONIDE\FORMOTEROL FUMARATE DIHYDRATE
  16. ALBUTEROL. [Concomitant]
     Active Substance: ALBUTEROL
  17. NATURAL VITAMIN FOR IMMUNE SYSTEM [Concomitant]
  18. VITAMIN FOR HEART AND BONES [Concomitant]
  19. LANSOPRAZOLE. [Concomitant]
     Active Substance: LANSOPRAZOLE
  20. LIDOCAINE/PRILOCAINE [Concomitant]
     Active Substance: LIDOCAINE\PRILOCAINE
  21. GAS-X [Concomitant]
     Active Substance: DIMETHICONE
  22. PROVENTIL [Concomitant]
     Active Substance: ALBUTEROL
  23. CALCIUM + D3 [Concomitant]
     Active Substance: CALCIUM\CHOLECALCIFEROL
  24. POTASSIUM CHLORIDE. [Concomitant]
     Active Substance: POTASSIUM CHLORIDE
  25. LOSARTAN-HCTZ [Concomitant]
     Active Substance: HYDROCHLOROTHIAZIDE\LOSARTAN
  26. ADVIL [Concomitant]
     Active Substance: IBUPROFEN
  27. SINGULAIR [Concomitant]
     Active Substance: MONTELUKAST SODIUM
  28. ACIDOPHILUS [Concomitant]
     Active Substance: LACTOBACILLUS ACIDOPHILUS
  29. STERILE WATER FOR INJECTION [Concomitant]
     Active Substance: WATER
  30. COMPLETE MULTIVITAMIN [Concomitant]
     Active Substance: VITAMINS
  31. PREDNISOLONE. [Concomitant]
     Active Substance: PREDNISOLONE
  32. TRIAMTERENE-HCTZ [Concomitant]
     Active Substance: HYDROCHLOROTHIAZIDE\TRIAMTERENE
  33. HYOSCYAMINE SULFATE. [Concomitant]
     Active Substance: HYOSCYAMINE SULFATE
  34. OXYGEN. [Concomitant]
     Active Substance: OXYGEN

REACTIONS (7)
  - Gastric operation [Recovered/Resolved]
  - Colitis [Recovered/Resolved]
  - Asthenia [Unknown]
  - Fatigue [Unknown]
  - Nausea [Recovered/Resolved]
  - Post procedural complication [Recovered/Resolved]
  - Vomiting [Recovered/Resolved]
